FAERS Safety Report 4638099-X (Version None)
Quarter: 2005Q2

REPORT INFORMATION
  Report Type: 
  Country: None (occurrence: None)
  Receive Date: 20050418
  Receipt Date: 20050411
  Transmission Date: 20051028
  Serious: Yes (Death, Other)
  Sender: FDA-Public Use
  Company Number: PHFR2005GB01443

PATIENT
  Age: 63 Year
  Sex: Female

DRUGS (6)
  1. DICLOFENAC SODIUM [Suspect]
     Indication: PAIN
     Dosage: 50MG/DAY
     Route: 048
     Dates: start: 20050307, end: 20050314
  2. MS CONTIN [Concomitant]
     Indication: PAIN
     Dosage: 30-90MG/DAY
     Route: 048
     Dates: start: 20050303
  3. OMEPRAZOLE [Concomitant]
     Indication: PROPHYLAXIS
     Dosage: 20MG/DAY
     Route: 048
     Dates: start: 20050309
  4. ACETAMINOPHEN [Concomitant]
     Route: 065
     Dates: start: 20050221
  5. TRAMADOL HCL [Concomitant]
     Route: 065
     Dates: start: 20050221
  6. CO-CODAMOL [Concomitant]
     Route: 065
     Dates: start: 20050221

REACTIONS (5)
  - GASTRIC ULCER [None]
  - HAEMATEMESIS [None]
  - HAEMOGLOBIN DECREASED [None]
  - HYPERTENSION [None]
  - REFLUX GASTRITIS [None]
